FAERS Safety Report 5833261-2 (Version None)
Quarter: 2008Q3

REPORT INFORMATION
  Report Type: 
  Country: None (occurrence: None)
  Receive Date: 20080805
  Receipt Date: 20080725
  Transmission Date: 20090109
  Serious: Yes (Other)
  Sender: FDA-Public Use
  Company Number: US-JNJFOC-20080403203

PATIENT
  Sex: Female
  Weight: 77.11 kg

DRUGS (14)
  1. FENTANYL TRANSDERMAL SYSTEM [Suspect]
     Indication: FIBROMYALGIA
     Route: 062
  2. FENTANYL TRANSDERMAL SYSTEM [Suspect]
     Indication: SYSTEMIC LUPUS ERYTHEMATOSUS
     Route: 062
  3. NORTRIPTYLINE HCL [Suspect]
     Indication: DEPRESSION
     Route: 048
  4. OXYCODONE HCL [Concomitant]
     Dosage: AS NEEDED
     Route: 048
  5. OXYCODONE HCL [Concomitant]
     Indication: BREAKTHROUGH PAIN
     Dosage: EVERY 6 HOURS AS NEEDED
     Route: 048
  6. XANAX [Concomitant]
     Indication: PANIC ATTACK
     Route: 048
  7. XANAX [Concomitant]
     Indication: ANXIETY
     Route: 048
  8. KLONOPIN [Concomitant]
     Indication: PANIC ATTACK
     Route: 048
  9. KLONOPIN [Concomitant]
     Indication: ANXIETY
     Route: 048
  10. ACIPHEX [Concomitant]
     Indication: GASTROOESOPHAGEAL REFLUX DISEASE
     Route: 048
  11. AMBIEN [Concomitant]
     Indication: SLEEP DISORDER
     Route: 048
  12. ESCLIM [Concomitant]
     Indication: HORMONE REPLACEMENT THERAPY
     Route: 048
  13. TYLENOL [Concomitant]
     Indication: PAIN
     Route: 048
  14. LASIX [Concomitant]
     Indication: SWELLING
     Route: 048

REACTIONS (12)
  - AUTOIMMUNE THYROIDITIS [None]
  - DEPRESSION [None]
  - DRUG INEFFECTIVE [None]
  - FEELING HOT [None]
  - HYPERHIDROSIS [None]
  - HYPERSOMNIA [None]
  - INADEQUATE ANALGESIA [None]
  - OEDEMA PERIPHERAL [None]
  - OVERDOSE [None]
  - PNEUMONIA [None]
  - WEIGHT INCREASED [None]
  - WRONG TECHNIQUE IN DRUG USAGE PROCESS [None]
